FAERS Safety Report 22103546 (Version 1)
Quarter: 2023Q1

REPORT INFORMATION
  Report Type: Spontaneous
  Country: US (occurrence: US)
  Receive Date: 20230316
  Receipt Date: 20230316
  Transmission Date: 20230417
  Serious: No
  Sender: FDA-Public Use
  Company Number: US-SMITH AND NEPHEW, INC-2022SMT00030

PATIENT
  Age: 58 Year
  Sex: Female
  Weight: 68.027 kg

DRUGS (5)
  1. COLLAGENASE SANTYL [Suspect]
     Active Substance: COLLAGENASE CLOSTRIDIUM HISTOLYTICUM
     Indication: Calciphylaxis
     Dosage: CENTIMETER SIZE OF EACH WOUND ON ABDOMEN, FLANK, AND UPPER THIGH; 1X/DAY
     Route: 061
     Dates: start: 202202
  2. COLLAGENASE SANTYL [Suspect]
     Active Substance: COLLAGENASE CLOSTRIDIUM HISTOLYTICUM
     Indication: Wound
  3. COLLAGENASE SANTYL [Suspect]
     Active Substance: COLLAGENASE CLOSTRIDIUM HISTOLYTICUM
     Indication: Impaired healing
  4. COLLAGENASE SANTYL [Suspect]
     Active Substance: COLLAGENASE CLOSTRIDIUM HISTOLYTICUM
     Indication: Wound necrosis
  5. UNSPECIFIED INGREDIENT [Concomitant]
     Active Substance: UNSPECIFIED INGREDIENT

REACTIONS (3)
  - Administration site pain [Not Recovered/Not Resolved]
  - Pain of skin [Unknown]
  - Product administration error [Unknown]

NARRATIVE: CASE EVENT DATE: 20220201
